FAERS Safety Report 5953498-1 (Version None)
Quarter: 2008Q4

REPORT INFORMATION
  Report Type: 
  Country: None (occurrence: None)
  Receive Date: 20081114
  Receipt Date: 20081030
  Transmission Date: 20090506
  Serious: Yes (Other)
  Sender: FDA-Public Use
  Company Number: US-BIOGENIDEC-2008BI024558

PATIENT
  Age: 41 Year
  Sex: Female

DRUGS (12)
  1. TYSABRI [Suspect]
     Indication: MULTIPLE SCLEROSIS
     Route: 042
     Dates: start: 20080808, end: 20080908
  2. COUMADIN [Concomitant]
     Indication: DEEP VEIN THROMBOSIS
  3. COUMADIN [Concomitant]
     Indication: PULMONARY EMBOLISM
  4. LEVOXYL [Concomitant]
  5. LEXAPRO [Concomitant]
     Indication: DEPRESSION
  6. ADVIL [Concomitant]
  7. OXYCODONE HCL [Concomitant]
  8. CLONAZEPAM [Concomitant]
     Indication: RESTLESS LEGS SYNDROME
  9. PREDNISONE TAB [Concomitant]
  10. DETROL LA [Concomitant]
     Indication: NEUROGENIC BLADDER
  11. VITAMIN D [Concomitant]
  12. ALBUTEROL [Concomitant]

REACTIONS (2)
  - HYPERSENSITIVITY [None]
  - MUSCLE SPASMS [None]
